FAERS Safety Report 16599981 (Version 2)
Quarter: 2019Q3

REPORT INFORMATION
  Report Type: Spontaneous
  Country: FR (occurrence: FR)
  Receive Date: 20190720
  Receipt Date: 20190820
  Transmission Date: 20191004
  Serious: Yes (Hospitalization)
  Sender: FDA-Public Use
  Company Number: FR-AXELLIA-002574

PATIENT
  Age: 76 Year
  Sex: Female
  Weight: 65 kg

DRUGS (10)
  1. TAZOCILLINE [Suspect]
     Active Substance: PIPERACILLIN SODIUM\TAZOBACTAM SODIUM
     Indication: ESCHERICHIA INFECTION
     Route: 042
     Dates: start: 20190523, end: 20190531
  2. PRAZEPAM [Concomitant]
     Active Substance: PRAZEPAM
     Route: 048
  3. METOCLOPRAMIDE. [Concomitant]
     Active Substance: METOCLOPRAMIDE
     Route: 042
  4. LOVENOX [Concomitant]
     Active Substance: ENOXAPARIN SODIUM
     Route: 058
  5. PANTOPRAZOLE [Concomitant]
     Active Substance: PANTOPRAZOLE
     Route: 042
  6. DAPTOMYCIN. [Suspect]
     Active Substance: DAPTOMYCIN
     Indication: ENTEROCOCCAL INFECTION
     Route: 042
     Dates: start: 20190519, end: 20190602
  7. OXYCODONE/OXYCODONE HYDROCHLORIDE/OXYCODONE PECTINATE/OXYCODONE TEREPHTHALATE [Concomitant]
     Route: 048
  8. FLUCONAZOLE. [Suspect]
     Active Substance: FLUCONAZOLE
     Indication: SYSTEMIC CANDIDA
     Route: 042
     Dates: start: 20190522, end: 20190603
  9. MATRIFEN [Concomitant]
     Active Substance: FENTANYL
     Dosage: 25 MICROGRAMS / HOUR, TRANSDERMAL PATCH
     Route: 062
  10. PARACETAMOL [Concomitant]
     Active Substance: ACETAMINOPHEN
     Route: 042

REACTIONS (1)
  - Neutropenia [Recovering/Resolving]

NARRATIVE: CASE EVENT DATE: 20190603
